FAERS Safety Report 9604609 (Version 1)
Quarter: 2013Q4

REPORT INFORMATION
  Report Type: Spontaneous
  Country: AE (occurrence: AE)
  Receive Date: 20131008
  Receipt Date: 20131008
  Transmission Date: 20140711
  Serious: Yes (Death, Hospitalization)
  Sender: FDA-Public Use
  Company Number: AE-PFIZER INC-2013282818

PATIENT
  Age: 52 Year
  Sex: Female

DRUGS (4)
  1. LINEZOLID [Suspect]
     Dosage: 600 MG, 2X/DAY
  2. TYGACIL [Suspect]
     Dosage: 100 MG AS LOADING DOSE
  3. TYGACIL [Suspect]
     Dosage: 50 MG, 2X/DAY AS A MAINTENANCE DOSE
  4. MEROPENEM [Suspect]

REACTIONS (1)
  - Death [Fatal]
